FAERS Safety Report 21143165 (Version 1)
Quarter: 2022Q3

REPORT INFORMATION
  Report Type: Spontaneous
  Country: PT (occurrence: PT)
  Receive Date: 20220728
  Receipt Date: 20220728
  Transmission Date: 20221026
  Serious: Yes (Other)
  Sender: FDA-Public Use
  Company Number: PT-NOVARTISPH-NVSC2022PT169737

PATIENT
  Age: 65 Year
  Sex: Female

DRUGS (1)
  1. TRIAMCINOLONE ACETONIDE [Suspect]
     Active Substance: TRIAMCINOLONE ACETONIDE
     Indication: Diabetic retinal oedema
     Dosage: UNK, UNKNOWN (4 MG/0.1 ML )
     Route: 031

REACTIONS (2)
  - Ocular hypertension [Recovered/Resolved]
  - Product use in unapproved indication [Unknown]
